FAERS Safety Report 11885458 (Version 1)
Quarter: 2016Q1

REPORT INFORMATION
  Report Type: Other
  Country: US (occurrence: US)
  Receive Date: 20160104
  Receipt Date: 20160104
  Transmission Date: 20160526
  Serious: Yes (Other)
  Sender: FDA-Public Use
  Company Number: US-ACORDA-ACO_113277_2015

PATIENT
  Sex: Male

DRUGS (1)
  1. AMPYRA [Suspect]
     Active Substance: DALFAMPRIDINE
     Indication: PRODUCT USED FOR UNKNOWN INDICATION
     Dosage: 10 MG, BID
     Route: 048
     Dates: start: 20141112

REACTIONS (6)
  - Musculoskeletal pain [Unknown]
  - Procedural pain [Unknown]
  - Cognitive disorder [Unknown]
  - Insomnia [Unknown]
  - Memory impairment [Unknown]
  - Vertebral body replacement [Unknown]

NARRATIVE: CASE EVENT DATE: 2015
